FAERS Safety Report 9883720 (Version 3)
Quarter: 2014Q2

REPORT INFORMATION
  Report Type: Spontaneous
  Country: US (occurrence: US)
  Receive Date: 20140210
  Receipt Date: 20140418
  Transmission Date: 20141212
  Serious: No
  Sender: FDA-Public Use
  Company Number: US-009507513-1402USA002921

PATIENT
  Age: 22 Year
  Sex: Female
  Weight: 88.89 kg

DRUGS (2)
  1. NEXPLANON [Suspect]
     Dosage: UNK
     Route: 059
     Dates: start: 20140204, end: 20140204
  2. NEXPLANON [Suspect]
     Dosage: ANOTHER NEXPLANON UNIT
     Route: 059
     Dates: start: 20140204

REACTIONS (4)
  - Device deployment issue [Recovered/Resolved]
  - Device difficult to use [Recovered/Resolved]
  - Product quality issue [Unknown]
  - No adverse event [Unknown]
